FAERS Safety Report 6480216-3 (Version None)
Quarter: 2009Q4

REPORT INFORMATION
  Report Type: 
  Country: None (occurrence: None)
  Receive Date: 20091208
  Receipt Date: 20091202
  Transmission Date: 20100525
  Serious: Yes (Death, Other)
  Sender: FDA-Public Use
  Company Number: JP-ROCHE-667829

PATIENT
  Age: 74 Year
  Sex: Male

DRUGS (4)
  1. DENOSINE IV [Suspect]
     Route: 042
  2. PREDNISOLONE [Suspect]
     Route: 048
  3. PREDNISOLONE [Suspect]
     Route: 048
  4. PREDNISOLONE [Suspect]
     Dosage: DOSE TAPERED
     Route: 048

REACTIONS (6)
  - CYTOMEGALOVIRUS ENTEROCOLITIS [None]
  - GASTROINTESTINAL HAEMORRHAGE [None]
  - HYPOAESTHESIA [None]
  - LOSS OF CONSCIOUSNESS [None]
  - RESPIRATORY FAILURE [None]
  - SHOCK HAEMORRHAGIC [None]
